FAERS Safety Report 9493632 (Version 13)
Quarter: 2016Q2

REPORT INFORMATION
  Report Type: Report from Study
  Country: CA (occurrence: CA)
  Receive Date: 20130902
  Receipt Date: 20160509
  Transmission Date: 20160815
  Serious: Yes (Life-Threatening, Hospitalization)
  Sender: FDA-Public Use
  Company Number: CA-JNJFOC-20130816723

PATIENT
  Age: 66 Year
  Sex: Male
  Weight: 113.4 kg

DRUGS (57)
  1. REMICADE [Suspect]
     Active Substance: INFLIXIMAB
     Indication: PSORIASIS
     Route: 042
     Dates: start: 20090729, end: 20130827
  2. REMICADE [Suspect]
     Active Substance: INFLIXIMAB
     Indication: PSORIASIS
     Route: 042
     Dates: start: 20090729, end: 20130827
  3. REMICADE [Suspect]
     Active Substance: INFLIXIMAB
     Indication: PSORIASIS
     Route: 042
     Dates: start: 20160217
  4. ATORVASTATIN [Concomitant]
     Active Substance: ATORVASTATIN
     Indication: HEART RATE
     Route: 048
     Dates: start: 20130813
  5. 5-FU [Concomitant]
     Active Substance: FLUOROURACIL
     Indication: CHEMOTHERAPY
     Route: 065
  6. RAPAFLO [Concomitant]
     Active Substance: SILODOSIN
     Route: 048
     Dates: start: 20130902
  7. ZOPICLONE [Concomitant]
     Active Substance: ZOPICLONE
     Route: 048
     Dates: start: 20131126
  8. ZOVIRAX [Concomitant]
     Active Substance: ACYCLOVIR
     Dosage: APPLY AS DIRECTED
     Route: 061
  9. DEXAMETHASONE. [Concomitant]
     Active Substance: DEXAMETHASONE
     Route: 048
     Dates: start: 20130928
  10. LOPERAMIDE [Concomitant]
     Active Substance: LOPERAMIDE
     Route: 048
     Dates: start: 20130925
  11. REMICADE [Suspect]
     Active Substance: INFLIXIMAB
     Indication: PSORIASIS
     Route: 042
     Dates: start: 20140430
  12. TWYNSTA [Concomitant]
     Active Substance: AMLODIPINE BESYLATE\TELMISARTAN
     Route: 048
     Dates: start: 20140216
  13. APO-ONDANSETRON [Concomitant]
     Route: 048
     Dates: start: 20130925
  14. REMICADE [Suspect]
     Active Substance: INFLIXIMAB
     Indication: PSORIASIS
     Route: 042
     Dates: start: 20140430
  15. HCTZ [Concomitant]
     Active Substance: HYDROCHLOROTHIAZIDE
     Indication: FLUID BALANCE ASSESSMENT
     Route: 048
     Dates: start: 20130704
  16. MICARDIS [Concomitant]
     Active Substance: TELMISARTAN
     Indication: CARDIAC DISORDER
     Route: 065
  17. ATORVASTATIN [Concomitant]
     Active Substance: ATORVASTATIN
     Indication: HEART RATE
     Route: 048
     Dates: start: 20140312
  18. ATORVASTATIN [Concomitant]
     Active Substance: ATORVASTATIN
     Indication: HEART RATE
     Route: 048
     Dates: start: 20131112
  19. NOVORAPID [Concomitant]
     Active Substance: INSULIN ASPART
     Dosage: 100 U/M AS DIRECTED
     Route: 065
     Dates: start: 20140321
  20. ZYLOPRIM [Concomitant]
     Active Substance: ALLOPURINOL
     Route: 048
     Dates: start: 20130704
  21. PROCHLORPERAZINE. [Concomitant]
     Active Substance: PROCHLORPERAZINE
     Dosage: 3 DAYS POST CHEMO
     Route: 048
  22. REMICADE [Suspect]
     Active Substance: INFLIXIMAB
     Indication: PSORIASIS
     Dosage: START DATE REPORTED AS 2-3 YEARS
     Route: 042
     Dates: start: 20130925
  23. REMICADE [Suspect]
     Active Substance: INFLIXIMAB
     Indication: PSORIASIS
     Dosage: START DATE REPORTED AS 2-3 YEARS
     Route: 042
     Dates: start: 20130925
  24. ASA [Concomitant]
     Active Substance: ASPIRIN
     Indication: CARDIAC DISORDER
     Route: 048
  25. METOPROLOL. [Concomitant]
     Active Substance: METOPROLOL
     Indication: BLOOD PRESSURE MEASUREMENT
     Route: 048
     Dates: start: 20140125
  26. TWYNSTA [Concomitant]
     Active Substance: AMLODIPINE BESYLATE\TELMISARTAN
     Route: 048
     Dates: start: 20130704
  27. ZYLOPRIM [Concomitant]
     Active Substance: ALLOPURINOL
     Route: 048
     Dates: start: 20130920
  28. CELEBREX [Concomitant]
     Active Substance: CELECOXIB
     Route: 065
  29. SORIATANE [Concomitant]
     Active Substance: ACITRETIN
     Route: 048
     Dates: start: 20140207
  30. NOVOMIX [Concomitant]
     Active Substance: INSULIN ASPART
     Dosage: 6 UNITS IN THE MORNING AND 4 UNITS AT SUPPER
     Route: 058
     Dates: start: 20140417
  31. ZOPICLONE [Concomitant]
     Active Substance: ZOPICLONE
     Route: 048
     Dates: start: 20140102
  32. ZOPICLONE [Concomitant]
     Active Substance: ZOPICLONE
     Route: 048
     Dates: start: 20140205
  33. TWYNSTA [Concomitant]
     Active Substance: AMLODIPINE BESYLATE\TELMISARTAN
     Route: 048
     Dates: start: 20131012
  34. TWYNSTA [Concomitant]
     Active Substance: AMLODIPINE BESYLATE\TELMISARTAN
     Route: 048
     Dates: start: 20131112
  35. SORIATANE [Concomitant]
     Active Substance: ACITRETIN
     Route: 048
     Dates: start: 20140314
  36. NOVOMIX [Concomitant]
     Active Substance: INSULIN ASPART
     Dosage: 6 UNITS IN THE MORNING AND 4 UNITS AT SUPPER
     Route: 058
     Dates: start: 20140217
  37. NOVORAPID [Concomitant]
     Active Substance: INSULIN ASPART
     Dosage: USE BEFORE MEALS
     Route: 065
     Dates: start: 20140219
  38. VALACYCLOVIR [Concomitant]
     Active Substance: VALACYCLOVIR HYDROCHLORIDE
     Route: 048
     Dates: start: 20140109
  39. VALACYCLOVIR [Concomitant]
     Active Substance: VALACYCLOVIR HYDROCHLORIDE
     Route: 048
     Dates: start: 20140405
  40. ZYLOPRIM [Concomitant]
     Active Substance: ALLOPURINOL
     Route: 048
     Dates: start: 20131227
  41. DEXAMETHASONE. [Concomitant]
     Active Substance: DEXAMETHASONE
     Dosage: POST CHEMO
     Route: 048
     Dates: start: 20130925
  42. REMICADE [Suspect]
     Active Substance: INFLIXIMAB
     Indication: PSORIASIS
     Route: 042
     Dates: end: 20140120
  43. REMICADE [Suspect]
     Active Substance: INFLIXIMAB
     Indication: PSORIASIS
     Route: 042
     Dates: start: 20160217
  44. REMICADE [Suspect]
     Active Substance: INFLIXIMAB
     Indication: PSORIASIS
     Route: 042
     Dates: end: 20140120
  45. REMICADE [Suspect]
     Active Substance: INFLIXIMAB
     Indication: PSORIASIS
     Route: 042
  46. METOPROLOL. [Concomitant]
     Active Substance: METOPROLOL
     Indication: BLOOD PRESSURE MEASUREMENT
     Route: 048
     Dates: start: 20130704
  47. SORIATANE [Concomitant]
     Active Substance: ACITRETIN
     Route: 048
     Dates: start: 20140405
  48. NOVOMIX [Concomitant]
     Active Substance: INSULIN ASPART
     Dosage: 6 UNITS IN THE MORNING AND 4 UNITS AT SUPPER
     Route: 058
     Dates: start: 20140321
  49. RAPAFLO [Concomitant]
     Active Substance: SILODOSIN
     Route: 048
     Dates: start: 20131111
  50. ZOPICLONE [Concomitant]
     Active Substance: ZOPICLONE
     Route: 048
     Dates: start: 20131022
  51. CIPROFLOXACIN. [Concomitant]
     Active Substance: CIPROFLOXACIN
     Route: 065
  52. REMICADE [Suspect]
     Active Substance: INFLIXIMAB
     Indication: PSORIASIS
     Route: 042
  53. METOPROLOL. [Concomitant]
     Active Substance: METOPROLOL
     Indication: BLOOD PRESSURE MEASUREMENT
     Route: 048
     Dates: start: 20131027
  54. ATORVASTATIN [Concomitant]
     Active Substance: ATORVASTATIN
     Indication: HEART RATE
     Route: 048
     Dates: start: 20140218
  55. SORIATANE [Concomitant]
     Active Substance: ACITRETIN
     Route: 048
     Dates: start: 20140109
  56. RAPAFLO [Concomitant]
     Active Substance: SILODOSIN
     Route: 048
     Dates: start: 20140314
  57. APO-ONDANSETRON [Concomitant]
     Dosage: PRE CHEMO
     Route: 048
     Dates: start: 20140320

REACTIONS (5)
  - Blood count abnormal [Not Recovered/Not Resolved]
  - Metastases to liver [Not Recovered/Not Resolved]
  - Adverse drug reaction [Unknown]
  - Colon cancer stage IV [Not Recovered/Not Resolved]
  - Cystitis [Recovered/Resolved]

NARRATIVE: CASE EVENT DATE: 20130827
